FAERS Safety Report 14978262 (Version 4)
Quarter: 2022Q2

REPORT INFORMATION
  Report Type: Spontaneous
  Country: CA (occurrence: None)
  Receive Date: 20180606
  Receipt Date: 20220412
  Transmission Date: 20220721
  Serious: Yes (Other)
  Sender: FDA-Public Use
  Company Number: CA-ROCHE-2133751

PATIENT
  Age: 67 Year
  Sex: Male

DRUGS (13)
  1. ACTEMRA [Suspect]
     Active Substance: TOCILIZUMAB
     Indication: Rheumatoid arthritis
     Route: 065
  2. RITUXAN [Suspect]
     Active Substance: RITUXIMAB
     Indication: Rheumatoid arthritis
     Route: 042
  3. ENBREL [Suspect]
     Active Substance: ETANERCEPT
     Indication: Rheumatoid arthritis
     Route: 065
  4. GOLIMUMAB [Suspect]
     Active Substance: GOLIMUMAB
     Indication: Product used for unknown indication
     Route: 065
  5. ORENCIA [Suspect]
     Active Substance: ABATACEPT
     Indication: Rheumatoid arthritis
     Route: 065
  6. ATORVASTATIN [Concomitant]
     Active Substance: ATORVASTATIN
     Indication: Blood cholesterol
     Route: 065
  7. HYDROXYCHLOROQUINE [Concomitant]
     Active Substance: HYDROXYCHLOROQUINE
     Indication: Rheumatoid arthritis
     Route: 065
  8. HYDROXYCHLOROQUINE [Concomitant]
     Active Substance: HYDROXYCHLOROQUINE
     Route: 065
  9. LEFLUNOMIDE [Concomitant]
     Active Substance: LEFLUNOMIDE
     Indication: Rheumatoid arthritis
     Route: 065
  10. LEFLUNOMIDE [Concomitant]
     Active Substance: LEFLUNOMIDE
     Route: 065
  11. METHOTREXATE [Concomitant]
     Active Substance: METHOTREXATE
     Indication: Rheumatoid arthritis
     Route: 065
  12. METHOTREXATE [Concomitant]
     Active Substance: METHOTREXATE
     Route: 065
  13. METHOTREXATE [Concomitant]
     Active Substance: METHOTREXATE
     Route: 065

REACTIONS (6)
  - Bone erosion [Unknown]
  - Rheumatoid arthritis [Unknown]
  - Synovitis [Unknown]
  - Treatment failure [Unknown]
  - Drug ineffective [Unknown]
  - Contraindicated product administered [Unknown]
